FAERS Safety Report 10168683 (Version 1)
Quarter: 2014Q2

REPORT INFORMATION
  Report Type: Spontaneous
  Country: US (occurrence: None)
  Receive Date: 20140509
  Receipt Date: 20140509
  Transmission Date: 20141212
  Serious: Yes (Life-Threatening, Other)
  Sender: FDA-Public Use
  Company Number: 2014AP002867

PATIENT
  Age: 65 Year
  Sex: Female
  Weight: 57 kg

DRUGS (9)
  1. LISINOPRIL AND HYDROCHLOROTHIAZIDE [Suspect]
     Indication: HYPERTENSION
     Dosage: Q.AM
  2. CRAVEDILOL (CARVEDILOL) [Concomitant]
  3. PRAVASTATIN (PRAVASTATIN) [Concomitant]
  4. BUPROPION (BUPROPION) [Concomitant]
  5. ASPIRIN (ACETYSALIC ACID) [Concomitant]
  6. MIDAZOLAM (MIDAZOLAM) [Concomitant]
  7. FENTANYL (FENTANYL) [Concomitant]
  8. PROPOFOL (PROPOFOL) [Concomitant]
  9. ROCURONIUM BROMIDE (ROCURONIUM BROMIDE) [Concomitant]

REACTIONS (2)
  - Procedural hypotension [None]
  - Cardiac arrest [None]
